FAERS Safety Report 5792413-0 (Version None)
Quarter: 2008Q2

REPORT INFORMATION
  Report Type: 
  Country: None (occurrence: None)
  Receive Date: 20080625
  Receipt Date: 20080319
  Transmission Date: 20081010
  Serious: Yes (Other)
  Sender: FDA-Public Use
  Company Number: US-WYE-H03223108

PATIENT
  Age: 54 Year
  Sex: Female
  Weight: 72.19 kg

DRUGS (6)
  1. TORISEL [Suspect]
     Indication: RENAL CELL CARCINOMA
     Dosage: 25 MG 1X PER 1 WK, INTRAVENOUS
     Route: 042
     Dates: start: 20080314
  2. MEGESTROL ACETATE [Concomitant]
  3. MORPHINE [Concomitant]
  4. ADVIL [Concomitant]
  5. ATIVAN [Concomitant]
  6. TEMAZEPAM [Concomitant]

REACTIONS (3)
  - RASH MACULAR [None]
  - RASH PRURITIC [None]
  - URTICARIA [None]
